FAERS Safety Report 19265251 (Version 7)
Quarter: 2022Q2

REPORT INFORMATION
  Report Type: Spontaneous
  Country: JP (occurrence: JP)
  Receive Date: 20210517
  Receipt Date: 20220426
  Transmission Date: 20220721
  Serious: Yes (Death, Hospitalization, Other)
  Sender: FDA-Public Use
  Company Number: JP-BRISTOL-MYERS SQUIBB COMPANY-BMS-2021-030813

PATIENT
  Age: 63 Year
  Sex: Male
  Weight: 67.4 kg

DRUGS (6)
  1. YERVOY [Suspect]
     Active Substance: IPILIMUMAB
     Indication: Metastatic renal cell carcinoma
     Dosage: 67 MILLIGRAM, Q3WK
     Route: 041
     Dates: start: 20210106, end: 20210311
  2. OPDIVO [Suspect]
     Active Substance: NIVOLUMAB
     Indication: Metastatic renal cell carcinoma
     Route: 041
     Dates: start: 20210106, end: 20210311
  3. ZOLEDRONIC ACID [Concomitant]
     Active Substance: ZOLEDRONIC ACID
     Indication: Product used for unknown indication
     Dosage: 4 MG, Q4W
     Route: 042
     Dates: start: 20210115, end: 20210311
  4. PROSCOPE 370 [Concomitant]
     Indication: Imaging procedure
     Dosage: 100 MILLILITER
     Route: 065
     Dates: start: 20210311, end: 20210311
  5. PROSCOPE 370 [Concomitant]
     Dosage: 100 MILLILITER
     Route: 065
     Dates: start: 20210316, end: 20210316
  6. IOPROMIDE [Concomitant]
     Active Substance: IOPROMIDE
     Indication: Imaging procedure
     Dosage: 100 MILLILITER
     Route: 065
     Dates: start: 20210322, end: 20210322

REACTIONS (4)
  - Hepatic failure [Fatal]
  - Malaise [Not Recovered/Not Resolved]
  - Disseminated intravascular coagulation [Not Recovered/Not Resolved]
  - Malignant neoplasm progression [Unknown]

NARRATIVE: CASE EVENT DATE: 20210315
